FAERS Safety Report 4416028-1 (Version None)
Quarter: 2004Q3

REPORT INFORMATION
  Report Type: 
  Country: None (occurrence: None)
  Receive Date: 20040804
  Receipt Date: 20040804
  Transmission Date: 20050211
  Serious: No
  Sender: FDA-Public Use
  Company Number: None

PATIENT

DRUGS (5)
  1. RISPERDAL [Suspect]
  2. GEODON [Suspect]
  3. TENEX [Concomitant]
  4. ZOLOFT [Concomitant]
  5. CONCERTA [Concomitant]

REACTIONS (2)
  - DRUG INTERACTION [None]
  - DYSTONIA [None]
